FAERS Safety Report 22516550 (Version 1)
Quarter: 2023Q2

REPORT INFORMATION
  Report Type: Spontaneous
  Country: FR (occurrence: FR)
  Receive Date: 20230603
  Receipt Date: 20230603
  Transmission Date: 20230721
  Serious: Yes (Hospitalization, Other)
  Sender: FDA-Public Use
  Company Number: FR-AFSSAPS-GR2023000680

PATIENT
  Age: 90 Year
  Sex: Male
  Weight: 86 kg

DRUGS (4)
  1. AMOXICILLIN [Suspect]
     Active Substance: AMOXICILLIN
     Indication: Sepsis
     Dosage: 8 GRAM
     Route: 042
     Dates: start: 20230119, end: 20230121
  2. AMOXICILLIN [Suspect]
     Active Substance: AMOXICILLIN
     Dosage: 4 GRAM
     Route: 042
     Dates: start: 20230122, end: 20230124
  3. GENTAMICIN [Suspect]
     Active Substance: GENTAMICIN
     Indication: Sepsis
     Dosage: 650 MILLIGRAM
     Route: 042
     Dates: start: 20230120, end: 20230120
  4. IOBITRIDOL [Suspect]
     Active Substance: IOBITRIDOL
     Indication: Computerised tomogram
     Dosage: 192.5 MILLIGRAM
     Route: 042
     Dates: start: 20230120, end: 20230120

REACTIONS (1)
  - Acute kidney injury [Recovered/Resolved]

NARRATIVE: CASE EVENT DATE: 20230120
